FAERS Safety Report 9642906 (Version 1)
Quarter: 2013Q4

REPORT INFORMATION
  Report Type: Report from Study
  Country: CL (occurrence: CL)
  Receive Date: 20131024
  Receipt Date: 20131024
  Transmission Date: 20140711
  Serious: Yes (Death, Other)
  Sender: FDA-Public Use
  Company Number: PHHY2013CL119726

PATIENT
  Age: 76 Year
  Sex: Female

DRUGS (1)
  1. TAREG D [Suspect]
     Dosage: 1 DF (160 MG VALS, 12.5 MG HYDR), UNK

REACTIONS (2)
  - Death [Fatal]
  - Myocardial infarction [Unknown]
